FAERS Safety Report 16208265 (Version 1)
Quarter: 2019Q2

REPORT INFORMATION
  Report Type: Spontaneous
  Country: FR (occurrence: FR)
  Receive Date: 20190417
  Receipt Date: 20190417
  Transmission Date: 20190711
  Serious: Yes (Hospitalization)
  Sender: FDA-Public Use
  Company Number: FR-TEVA-2019-FR-1038169

PATIENT
  Age: 85 Year
  Sex: Female

DRUGS (8)
  1. IMOVANE [Concomitant]
     Active Substance: ZOPICLONE
  2. ISOPTINE [Concomitant]
     Active Substance: VERAPAMIL HYDROCHLORIDE
  3. SERESTA [Concomitant]
     Active Substance: OXAZEPAM
  4. PREGABALINE [Concomitant]
     Active Substance: PREGABALIN
  5. RISPERIDONE. [Suspect]
     Active Substance: RISPERIDONE
     Indication: PRODUCT USED FOR UNKNOWN INDICATION
     Route: 048
  6. TIAPRIDAL [Concomitant]
     Active Substance: TIAPRIDE HYDROCHLORIDE
  7. PARACETAMOL [Concomitant]
     Active Substance: ACETAMINOPHEN
  8. BETAHISTINE (CHLORHYDRATE) [Concomitant]
     Active Substance: BETAHISTINE HYDROCHLORIDE

REACTIONS (1)
  - Epilepsy [Recovered/Resolved]

NARRATIVE: CASE EVENT DATE: 20190319
